FAERS Safety Report 20583000 (Version 1)
Quarter: 2022Q1

REPORT INFORMATION
  Report Type: Spontaneous
  Country: US (occurrence: US)
  Receive Date: 20220311
  Receipt Date: 20220311
  Transmission Date: 20220423
  Serious: Yes (Disabling)
  Sender: FDA-Public Use
  Company Number: US-TEVA-2022-US-2016533

PATIENT
  Age: 50 Year
  Sex: Female

DRUGS (7)
  1. DOCETAXEL [Suspect]
     Active Substance: DOCETAXEL
     Indication: Breast cancer female
     Dosage: NUMBER OF CYCLE-06, EVERY THREE WEEKS WITH 125-130MG
     Route: 042
     Dates: start: 20150218, end: 20150604
  2. DOCETAXEL [Suspect]
     Active Substance: DOCETAXEL
     Indication: Breast cancer female
     Dosage: NUMBER OF CYCLE-06, EVERY THREE WEEKS WITH 125-130MG
     Route: 042
     Dates: start: 20150218, end: 20150604
  3. DOCETAXEL [Suspect]
     Active Substance: DOCETAXEL
     Indication: Breast cancer female
     Dosage: NUMBER OF CYCLE-06, EVERY THREE WEEKS WITH 125-130MG
     Route: 042
     Dates: start: 20150218, end: 20150604
  4. CYTOXAN [Suspect]
     Active Substance: CYCLOPHOSPHAMIDE
     Indication: Breast cancer female
     Dosage: NUMBER OF CYCLE-06, EVERY THREE WEEKS WITH 990 MG-1020MG
     Route: 042
     Dates: start: 20150218, end: 20150604
  5. ALOXI [Concomitant]
     Active Substance: PALONOSETRON HYDROCHLORIDE
     Dosage: DOSE: 0.25 MG
     Route: 042
     Dates: start: 20150218, end: 20150604
  6. DECADRON [Concomitant]
     Active Substance: DEXAMETHASONE
     Route: 048
     Dates: start: 20150218, end: 20150604
  7. NEULASTA [Concomitant]
     Active Substance: PEGFILGRASTIM
     Dosage: DOSE: 3-6 MG
     Route: 058
     Dates: start: 20150219, end: 20150605

REACTIONS (12)
  - Alopecia areata [Not Recovered/Not Resolved]
  - Madarosis [Not Recovered/Not Resolved]
  - Hair texture abnormal [Not Recovered/Not Resolved]
  - Hair colour changes [Not Recovered/Not Resolved]
  - Constipation [Unknown]
  - Fatigue [Unknown]
  - Decreased appetite [Unknown]
  - Lymphocyte count decreased [Unknown]
  - Nausea [Unknown]
  - Blood alkaline phosphatase increased [Unknown]
  - Stomatitis [Unknown]
  - Blood bilirubin increased [Unknown]

NARRATIVE: CASE EVENT DATE: 20150201
